FAERS Safety Report 24845456 (Version 1)
Quarter: 2025Q1

REPORT INFORMATION
  Report Type: Spontaneous
  Country: ES (occurrence: ES)
  Receive Date: 20250115
  Receipt Date: 20250115
  Transmission Date: 20250409
  Serious: Yes (Other)
  Sender: PFIZER
  Company Number: None

PATIENT
  Age: 1 Month
  Sex: Female

DRUGS (2)
  1. VANCOMYCIN HYDROCHLORIDE [Suspect]
     Active Substance: VANCOMYCIN HYDROCHLORIDE
     Indication: Sepsis neonatal
     Route: 042
     Dates: start: 20240918, end: 20241026
  2. MEROPENEM [Suspect]
     Active Substance: MEROPENEM
     Indication: Meningitis
     Route: 042
     Dates: start: 20241002, end: 20241030

REACTIONS (2)
  - Hepatitis cholestatic [Recovering/Resolving]
  - Condition aggravated [Recovering/Resolving]

NARRATIVE: CASE EVENT DATE: 20241007
